FAERS Safety Report 19575451 (Version 1)
Quarter: 2021Q3

REPORT INFORMATION
  Report Type: Spontaneous
  Country: US (occurrence: US)
  Receive Date: 20210719
  Receipt Date: 20210719
  Transmission Date: 20211014
  Serious: Yes (Death, Life-Threatening, Hospitalization, Other)
  Sender: FDA-Public Use
  Company Number: US-LUPIN PHARMACEUTICALS INC.-2021-12055

PATIENT
  Age: 13 Year
  Sex: Female

DRUGS (1)
  1. METFORMIN [Suspect]
     Active Substance: METFORMIN HYDROCHLORIDE
     Indication: PRODUCT USED FOR UNKNOWN INDICATION
     Dosage: UNK
     Route: 048

REACTIONS (11)
  - Hypotension [Unknown]
  - Unresponsive to stimuli [Unknown]
  - Hypoglycaemia [Unknown]
  - Mental status changes [Unknown]
  - Suicide attempt [Fatal]
  - Brain herniation [Unknown]
  - Coagulopathy [Unknown]
  - Cerebral ischaemia [Unknown]
  - Toxicity to various agents [Fatal]
  - Brain oedema [Unknown]
  - Multiple organ dysfunction syndrome [Unknown]
